FAERS Safety Report 9370685 (Version 1)
Quarter: 2013Q2

REPORT INFORMATION
  Report Type: Spontaneous
  Country: US (occurrence: US)
  Receive Date: 20130626
  Receipt Date: 20130626
  Transmission Date: 20140414
  Serious: Yes (Other)
  Sender: FDA-Public Use
  Company Number: US-ABBOTT-13P-163-1108795-00

PATIENT
  Age: 74 Year
  Sex: Male

DRUGS (1)
  1. LUPRON DEPOT [Suspect]
     Indication: PROSTATE CANCER
     Route: 042
     Dates: start: 2013

REACTIONS (5)
  - Abdominal pain upper [Unknown]
  - Lip swelling [Unknown]
  - Erythema [Unknown]
  - Rash pustular [Unknown]
  - Pruritus [Unknown]
